FAERS Safety Report 8474978-3 (Version None)
Quarter: 2012Q2

REPORT INFORMATION
  Report Type: 
  Country: None (occurrence: None)
  Receive Date: 20120628
  Receipt Date: 20120627
  Transmission Date: 20120825
  Serious: Yes (Death)
  Sender: FDA-Public Use
  Company Number: PHHY2012PE049118

PATIENT
  Sex: Female

DRUGS (1)
  1. DIOVAN HCT [Suspect]
     Indication: HYPERTENSION
     Dosage: 1 DF (160/12.5 MG ), DAILY
     Dates: start: 20110714

REACTIONS (3)
  - PHARYNGEAL OEDEMA [None]
  - TOOTH LOSS [None]
  - DEHYDRATION [None]
